FAERS Safety Report 6911787-8 (Version None)
Quarter: 2010Q3

REPORT INFORMATION
  Report Type: 
  Country: None (occurrence: None)
  Receive Date: 20100806
  Receipt Date: 20070709
  Transmission Date: 20110219
  Serious: No
  Sender: FDA-Public Use
  Company Number: US-PFIZER INC-2006028184

PATIENT
  Sex: Male

DRUGS (11)
  1. DETROL LA [Suspect]
     Indication: BENIGN PROSTATIC HYPERPLASIA
     Dates: start: 20060123, end: 20060314
  2. COUMADIN [Concomitant]
  3. PROSCAR [Concomitant]
  4. THEO-DUR [Concomitant]
  5. VANCERIL [Concomitant]
  6. AZMACORT [Concomitant]
  7. MODURETIC 5-50 [Concomitant]
  8. VERAPAMIL [Concomitant]
  9. LANOXIN [Concomitant]
  10. SEREVENT [Concomitant]
  11. HYDROCHLOROTHIAZIDE [Concomitant]

REACTIONS (1)
  - CHEST PAIN [None]
